FAERS Safety Report 25115590 (Version 2)
Quarter: 2025Q2

REPORT INFORMATION
  Report Type: Report from Study
  Country: US (occurrence: US)
  Receive Date: 20250325
  Receipt Date: 20250404
  Transmission Date: 20250717
  Serious: Yes (Other)
  Sender: TEVA
  Company Number: US-TEVA-VS-3312516

PATIENT

DRUGS (3)
  1. CETIRIZINE [Suspect]
     Active Substance: CETIRIZINE HYDROCHLORIDE
     Indication: Allergy prophylaxis
     Route: 048
  2. RANITIDINE [Concomitant]
     Active Substance: RANITIDINE
     Indication: Gastritis prophylaxis
     Route: 042
  3. OXALIPLATIN [Suspect]
     Active Substance: OXALIPLATIN
     Indication: Immune tolerance induction
     Route: 065

REACTIONS (9)
  - Drug hypersensitivity [Recovering/Resolving]
  - Drug ineffective [Unknown]
  - Abdominal pain [Unknown]
  - Back pain [Unknown]
  - Angioedema [Recovered/Resolved]
  - Pyrexia [Unknown]
  - Chills [Unknown]
  - Headache [Unknown]
  - Pruritus [Recovered/Resolved]
